FAERS Safety Report 6071014-3 (Version None)
Quarter: 2009Q1

REPORT INFORMATION
  Report Type: 
  Country: None (occurrence: None)
  Receive Date: 20090209
  Receipt Date: 20090128
  Transmission Date: 20090719
  Serious: Yes (Hospitalization)
  Sender: FDA-Public Use
  Company Number: B0556382A

PATIENT
  Age: 84 Year
  Sex: Female

DRUGS (10)
  1. VENTOLIN [Suspect]
     Indication: DRUG USE FOR UNKNOWN INDICATION
     Route: 055
  2. LYRICA [Suspect]
     Route: 048
     Dates: start: 20081222
  3. FLIXOTIDE DISKUS [Concomitant]
     Indication: DRUG USE FOR UNKNOWN INDICATION
     Dosage: 3UNIT PER DAY
     Route: 055
  4. TRAMADOL HCL [Concomitant]
     Indication: DRUG USE FOR UNKNOWN INDICATION
     Route: 048
  5. BIPRETERAX [Concomitant]
     Route: 048
  6. SERESTA [Concomitant]
     Indication: DRUG USE FOR UNKNOWN INDICATION
     Dosage: 1TAB PER DAY
     Route: 048
  7. NEXIUM [Concomitant]
     Indication: DRUG USE FOR UNKNOWN INDICATION
     Dosage: 1TAB UNKNOWN
     Route: 048
  8. MUCOMYST [Concomitant]
     Indication: DRUG USE FOR UNKNOWN INDICATION
     Dosage: 3UNIT PER DAY
     Route: 048
  9. SPIRIVA [Concomitant]
     Dosage: 1UNIT PER DAY
     Route: 055
  10. DITROPAN [Concomitant]
     Indication: DRUG USE FOR UNKNOWN INDICATION
     Dosage: 3UNIT PER DAY
     Route: 065

REACTIONS (8)
  - DYSSTASIA [None]
  - FALL [None]
  - HAEMATOMA [None]
  - HEADACHE [None]
  - MALAISE [None]
  - MOTOR DYSFUNCTION [None]
  - NAUSEA [None]
  - PAIN IN EXTREMITY [None]
